FAERS Safety Report 12670411 (Version 1)
Quarter: 2016Q3

REPORT INFORMATION
  Report Type: Spontaneous
  Country: US (occurrence: US)
  Receive Date: 20160822
  Receipt Date: 20160822
  Transmission Date: 20161109
  Serious: Yes (Other)
  Sender: FDA-Public Use
  Company Number: US-GLAXOSMITHKLINE-US2016120042

PATIENT
  Sex: Female

DRUGS (1)
  1. EXCEDRIN PM TRIPLE ACTION CAPLETS [Suspect]
     Active Substance: ACETAMINOPHEN\ASPIRIN\DIPHENHYDRAMINE CITRATE
     Indication: PRODUCT USED FOR UNKNOWN INDICATION
     Dosage: UNK

REACTIONS (1)
  - Drug dependence [Not Recovered/Not Resolved]
